FAERS Safety Report 13678397 (Version 1)
Quarter: 2017Q2

REPORT INFORMATION
  Report Type: Spontaneous
  Country: US (occurrence: US)
  Receive Date: 20170622
  Receipt Date: 20170622
  Transmission Date: 20170830
  Serious: No
  Sender: FDA-Public Use
  Company Number: PHEH2017US018786

PATIENT
  Age: 74 Year
  Sex: Female
  Weight: 91.17 kg

DRUGS (1)
  1. TASIGNA [Suspect]
     Active Substance: NILOTINIB
     Indication: CHRONIC MYELOID LEUKAEMIA
     Dosage: 150 MG, BID
     Route: 048
     Dates: start: 20170130

REACTIONS (3)
  - Hyperkeratosis [Unknown]
  - Skin disorder [Unknown]
  - Acrochordon [Unknown]

NARRATIVE: CASE EVENT DATE: 20170228
